FAERS Safety Report 13433466 (Version 16)
Quarter: 2019Q1

REPORT INFORMATION
  Report Type: Report from Study
  Country: US (occurrence: US)
  Receive Date: 20170412
  Receipt Date: 20190329
  Transmission Date: 20190417
  Serious: Yes (Hospitalization, Other)
  Sender: FDA-Public Use
  Company Number: US-JNJFOC-20170412364

PATIENT
  Age: 63 Year
  Sex: Female

DRUGS (21)
  1. IMBRUVICA [Suspect]
     Active Substance: IBRUTINIB
     Indication: CHRONIC LYMPHOCYTIC LEUKAEMIA STAGE 4
     Route: 048
     Dates: start: 20160130, end: 201705
  2. IMBRUVICA [Suspect]
     Active Substance: IBRUTINIB
     Indication: CHRONIC LYMPHOCYTIC LEUKAEMIA STAGE 4
     Route: 048
     Dates: start: 20170528, end: 20170701
  3. FISH OIL [Concomitant]
     Active Substance: FISH OIL
  4. PEPCID [Concomitant]
     Active Substance: FAMOTIDINE
  5. VITAMIN D [Concomitant]
     Active Substance: CHOLECALCIFEROL
  6. IMBRUVICA [Suspect]
     Active Substance: IBRUTINIB
     Indication: CHRONIC LYMPHOCYTIC LEUKAEMIA STAGE 4
     Route: 048
     Dates: start: 20170426, end: 20170701
  7. PREDNISONE. [Concomitant]
     Active Substance: PREDNISONE
     Indication: PNEUMONITIS
     Route: 048
     Dates: start: 20170426, end: 20170701
  8. AMBIEN [Concomitant]
     Active Substance: ZOLPIDEM TARTRATE
  9. PREDNISONE. [Concomitant]
     Active Substance: PREDNISONE
     Indication: PNEUMONITIS
     Route: 048
     Dates: start: 20170426, end: 20180226
  10. ASPIRIN. [Concomitant]
     Active Substance: ASPIRIN
  11. LIPITOR [Concomitant]
     Active Substance: ATORVASTATIN CALCIUM
     Indication: BLOOD CHOLESTEROL ABNORMAL
  12. IMBRUVICA [Suspect]
     Active Substance: IBRUTINIB
     Indication: CHRONIC LYMPHOCYTIC LEUKAEMIA STAGE 4
     Route: 048
     Dates: end: 20170708
  13. NORVASC [Concomitant]
     Active Substance: AMLODIPINE BESYLATE
  14. XANAX [Concomitant]
     Active Substance: ALPRAZOLAM
     Indication: ANXIETY
  15. ZOLOFT [Concomitant]
     Active Substance: SERTRALINE HYDROCHLORIDE
     Indication: ANXIETY
  16. IMBRUVICA [Suspect]
     Active Substance: IBRUTINIB
     Indication: CHRONIC LYMPHOCYTIC LEUKAEMIA STAGE 4
     Route: 048
     Dates: start: 20160105, end: 20170308
  17. IMBRUVICA [Suspect]
     Active Substance: IBRUTINIB
     Indication: CHRONIC LYMPHOCYTIC LEUKAEMIA STAGE 4
     Route: 048
     Dates: start: 20170602, end: 201707
  18. IMBRUVICA [Suspect]
     Active Substance: IBRUTINIB
     Indication: CHRONIC LYMPHOCYTIC LEUKAEMIA STAGE 4
     Route: 048
     Dates: start: 20161201, end: 20170805
  19. LOSARTAN. [Concomitant]
     Active Substance: LOSARTAN
     Indication: HYPERTENSION
  20. PREDNISONE. [Concomitant]
     Active Substance: PREDNISONE
     Indication: PNEUMONITIS
     Route: 048
     Dates: start: 20170809
  21. ATIVAN [Concomitant]
     Active Substance: LORAZEPAM

REACTIONS (4)
  - Peripheral swelling [Unknown]
  - Organising pneumonia [Unknown]
  - Pulmonary fibrosis [Not Recovered/Not Resolved]
  - Pneumonitis [Recovering/Resolving]

NARRATIVE: CASE EVENT DATE: 2017
